FAERS Safety Report 7971586-5 (Version None)
Quarter: 2011Q4

REPORT INFORMATION
  Report Type: 
  Country: None (occurrence: None)
  Receive Date: 20111212
  Receipt Date: 20111205
  Transmission Date: 20120403
  Serious: Yes (Hospitalization, Other)
  Sender: FDA-Public Use
  Company Number: IN-PFIZER INC-2011294675

PATIENT
  Age: 76 Year
  Sex: Male

DRUGS (3)
  1. AZITHROMYCIN [Suspect]
     Indication: UPPER RESPIRATORY TRACT INFECTION
     Dosage: 500 MG, PER DAY FOR 3 DAYS
  2. ACETAMINOPHEN [Concomitant]
     Indication: UPPER RESPIRATORY TRACT INFECTION
     Dosage: 500 MG, UNK
  3. RANTAC [Concomitant]
     Indication: UPPER RESPIRATORY TRACT INFECTION
     Dosage: 300 MG/DAY

REACTIONS (5)
  - HEPATIC ENCEPHALOPATHY [None]
  - CONGESTIVE CARDIOMYOPATHY [None]
  - HEPATOTOXICITY [None]
  - HEPATIC NECROSIS [None]
  - HEPATOMEGALY [None]
